FAERS Safety Report 21143462 (Version 1)
Quarter: 2022Q3

REPORT INFORMATION
  Report Type: Spontaneous
  Country: US (occurrence: None)
  Receive Date: 20220728
  Receipt Date: 20220728
  Transmission Date: 20221026
  Serious: Yes (Other)
  Sender: FDA-Public Use
  Company Number: None

PATIENT
  Age: 71 Year
  Sex: Female
  Weight: 50.4 kg

DRUGS (9)
  1. PAXLOVID [Suspect]
     Active Substance: NIRMATRELVIR\RITONAVIR
     Indication: COVID-19
     Dosage: FREQUENCY : TWICE A DAY;?
     Route: 048
     Dates: start: 20220727, end: 20220728
  2. METOPROLOL [Concomitant]
     Active Substance: METOPROLOL
     Dates: start: 20190118
  3. SIMVASTATIN [Concomitant]
     Active Substance: SIMVASTATIN
     Dates: start: 20160101
  4. VITAMIN D [Concomitant]
     Active Substance: VITAMIN D NOS
  5. ALIGN [Concomitant]
     Active Substance: BIFIDOBACTERIUM LONGUM SUBSP. INFANTIS
     Dates: start: 20120101
  6. AlgaeCal [Concomitant]
  7. DIMETHYL SULFONE [Concomitant]
     Active Substance: DIMETHYL SULFONE
     Dates: start: 20220707
  8. VALACYCLOVIR [Concomitant]
     Active Substance: VALACYCLOVIR HYDROCHLORIDE
  9. DIETARY SUPPLEMENT [Concomitant]
     Active Substance: DIETARY SUPPLEMENT

REACTIONS (8)
  - Dysgeusia [None]
  - Gastrointestinal sounds abnormal [None]
  - Middle insomnia [None]
  - Nausea [None]
  - Back pain [None]
  - Dry throat [None]
  - Dyspnoea [None]
  - Hyperhidrosis [None]

NARRATIVE: CASE EVENT DATE: 20220727
